FAERS Safety Report 7362744-1 (Version None)
Quarter: 2011Q1

REPORT INFORMATION
  Report Type: 
  Country: None (occurrence: None)
  Receive Date: 20110321
  Receipt Date: 20110309
  Transmission Date: 20110831
  Serious: No
  Sender: FDA-Public Use
  Company Number: US-BIOGENIDEC-2010BI014771

PATIENT
  Age: 31 Year
  Sex: Female

DRUGS (3)
  1. TYSABRI [Suspect]
     Indication: MULTIPLE SCLEROSIS
     Route: 042
     Dates: start: 20091118
  2. WELLBUTRIN [Concomitant]
     Indication: MOOD ALTERED
  3. PROVIGIL [Concomitant]
     Indication: FATIGUE

REACTIONS (10)
  - MUSCLE SPASTICITY [None]
  - VULVOVAGINAL PRURITUS [None]
  - IRON DEFICIENCY [None]
  - TRISMUS [None]
  - MUSCLE TWITCHING [None]
  - INFUSION RELATED REACTION [None]
  - VULVOVAGINAL DISCOMFORT [None]
  - VAGINAL DISCHARGE [None]
  - VAGINAL PH DECREASED [None]
  - WEIGHT DECREASED [None]
